FAERS Safety Report 10084448 (Version 1)
Quarter: 2014Q2

REPORT INFORMATION
  Report Type: Spontaneous
  Country: US (occurrence: US)
  Receive Date: 20140417
  Receipt Date: 20140417
  Transmission Date: 20141212
  Serious: Yes (Other)
  Sender: FDA-Public Use
  Company Number: US-SA-2014SA044206

PATIENT
  Sex: 0

DRUGS (2)
  1. PLAVIX [Suspect]
     Indication: PRODUCT USED FOR UNKNOWN INDICATION
     Route: 048
     Dates: start: 200002
  2. ASPIRIN [Concomitant]
     Dates: start: 200002

REACTIONS (2)
  - Multiple injuries [Unknown]
  - Cerebral haemorrhage [Unknown]
